FAERS Safety Report 12367939 (Version 1)
Quarter: 2016Q2

REPORT INFORMATION
  Report Type: Spontaneous
  Country: US (occurrence: US)
  Receive Date: 20160513
  Receipt Date: 20160513
  Transmission Date: 20160815
  Serious: No
  Sender: FDA-Public Use
  Company Number: US-JNJFOC-20160327980

PATIENT
  Age: 73 Year
  Sex: Female
  Weight: 56.25 kg

DRUGS (2)
  1. WOMENS ROGAINE UNSCENTED [Suspect]
     Active Substance: MINOXIDIL
     Indication: TRICHORRHEXIS
     Dosage: 1/2 - 1 CAPFUL, ABOUT ONCE A WEEK
     Route: 061
  2. WOMENS ROGAINE UNSCENTED [Suspect]
     Active Substance: MINOXIDIL
     Indication: ALOPECIA
     Dosage: 1/2 - 1 CAPFUL, ABOUT ONCE A WEEK
     Route: 061

REACTIONS (5)
  - Off label use [Unknown]
  - Product quality issue [Unknown]
  - Product formulation issue [Unknown]
  - Drug administered at inappropriate site [Unknown]
  - Product use issue [Unknown]
